FAERS Safety Report 12642129 (Version 2)
Quarter: 2016Q3

REPORT INFORMATION
  Report Type: Report from Study
  Country: BR (occurrence: BR)
  Receive Date: 20160810
  Receipt Date: 20160822
  Transmission Date: 20161109
  Serious: Yes (Other)
  Sender: FDA-Public Use
  Company Number: PHHY2016BR108393

PATIENT
  Sex: Male
  Weight: 60 kg

DRUGS (4)
  1. TRILEPTAL [Suspect]
     Active Substance: OXCARBAZEPINE
     Dosage: 1 DF (600 MG CONCENTRATION), UNK
     Route: 048
     Dates: start: 201608
  2. OXCARBAZEPINA [Suspect]
     Active Substance: OXCARBAZEPINE
     Indication: SEIZURE
     Dosage: 2.5 DF, QD (1 IN THE MORNING, HALF AT LUNCH TIME AND AT NIGHT)
     Route: 048
     Dates: start: 2008
  3. GARDENAL//PHENOBARBITAL [Concomitant]
     Active Substance: PHENOBARBITAL
     Indication: SEIZURE
     Dosage: 1 DF, QD
     Route: 048
  4. TRILEPTAL [Suspect]
     Active Substance: OXCARBAZEPINE
     Indication: SEIZURE
     Dosage: 1.5 DF, QD (0.5 IN THE MORNING, 0.5 IN THE AFTERNOON AND 0.5 AT NIGHT) 300 MG CONCENTRATION
     Route: 048

REACTIONS (6)
  - Seizure [Recovering/Resolving]
  - Wrong technique in product usage process [Unknown]
  - Respiratory arrest [Recovered/Resolved]
  - Petit mal epilepsy [Unknown]
  - Condition aggravated [Recovering/Resolving]
  - Dysphagia [Recovering/Resolving]
